FAERS Safety Report 17587087 (Version 2)
Quarter: 2021Q2

REPORT INFORMATION
  Report Type: Other
  Country: CA (occurrence: CA)
  Receive Date: 20200326
  Receipt Date: 20210405
  Transmission Date: 20210716
  Serious: Yes (Other)
  Sender: FDA-Public Use
  Company Number: CA-APOTEX-2020AP008902

PATIENT
  Sex: Female

DRUGS (4)
  1. FENTANYL. [Suspect]
     Active Substance: FENTANYL
     Indication: PAIN
  2. OXYCODONE [Suspect]
     Active Substance: OXYCODONE
     Indication: SPINAL DISORDER
     Dosage: UNK
     Route: 065
  3. FENTANYL. [Suspect]
     Active Substance: FENTANYL
     Indication: SPINAL DISORDER
     Dosage: UNK
     Route: 065
  4. OXYCODONE [Suspect]
     Active Substance: OXYCODONE
     Indication: PAIN

REACTIONS (3)
  - Drug dependence [Unknown]
  - Mobility decreased [Unknown]
  - Tooth loss [Unknown]
